FAERS Safety Report 11235205 (Version 1)
Quarter: 2015Q3

REPORT INFORMATION
  Report Type: Spontaneous
  Country: US (occurrence: US)
  Receive Date: 20150702
  Receipt Date: 20150702
  Transmission Date: 20151125
  Serious: Yes (Hospitalization, Other)
  Sender: FDA-Public Use
  Company Number: US-TEVA-574537ACC

PATIENT
  Sex: Female
  Weight: 56.75 kg

DRUGS (10)
  1. ATENOLOL. [Concomitant]
     Active Substance: ATENOLOL
     Indication: HYPERTENSION
     Dosage: 1 MILLIGRAM DAILY;
  2. AMITRIPTYLINE [Concomitant]
     Active Substance: AMITRIPTYLINE
     Indication: DEPRESSION
  3. DIAZEPAM. [Concomitant]
     Active Substance: DIAZEPAM
     Indication: ANXIETY
  4. DIAZEPAM. [Concomitant]
     Active Substance: DIAZEPAM
     Indication: SEIZURE
  5. VITAMIN B12 INJECTION [Concomitant]
     Indication: VITAMIN B12 DEFICIENCY
  6. AMITRIPTYLINE [Concomitant]
     Active Substance: AMITRIPTYLINE
     Indication: INSOMNIA
  7. PARAGARD T 380A [Suspect]
     Active Substance: COPPER
     Route: 015
     Dates: start: 1995, end: 1998
  8. DILANTIN [Concomitant]
     Active Substance: PHENYTOIN
     Indication: SEIZURE
     Dosage: 16 MILLIGRAM DAILY;
     Dates: start: 2009
  9. PARAGARD T 380A [Suspect]
     Active Substance: COPPER
     Indication: CONTRACEPTION
     Route: 015
     Dates: start: 200912
  10. LANSOPRAZOLE. [Concomitant]
     Active Substance: LANSOPRAZOLE
     Indication: GASTRIC ULCER

REACTIONS (5)
  - Impaired driving ability [Not Recovered/Not Resolved]
  - Impaired work ability [Not Recovered/Not Resolved]
  - Seizure [Not Recovered/Not Resolved]
  - Premenstrual cramps [Not Recovered/Not Resolved]
  - Menstruation irregular [Recovered/Resolved]

NARRATIVE: CASE EVENT DATE: 2009
